FAERS Safety Report 11911293 (Version 2)
Quarter: 2017Q1

REPORT INFORMATION
  Report Type: Spontaneous
  Country: US (occurrence: US)
  Receive Date: 20160112
  Receipt Date: 20170208
  Transmission Date: 20170428
  Serious: Yes (Other)
  Sender: FDA-Public Use
  Company Number: US-ELI_LILLY_AND_COMPANY-US201601001009

PATIENT
  Sex: Female

DRUGS (8)
  1. CYMBALTA [Suspect]
     Active Substance: DULOXETINE HYDROCHLORIDE
     Dosage: 90 MG, QD
     Route: 048
  2. CYMBALTA [Suspect]
     Active Substance: DULOXETINE HYDROCHLORIDE
     Dosage: 60 MG, QD
     Route: 048
  3. CYMBALTA [Suspect]
     Active Substance: DULOXETINE HYDROCHLORIDE
     Indication: PAIN
     Dosage: UNK, UNKNOWN
     Route: 065
  4. CYMBALTA [Suspect]
     Active Substance: DULOXETINE HYDROCHLORIDE
     Dosage: 30 MG, TID
     Route: 048
  5. CYMBALTA [Suspect]
     Active Substance: DULOXETINE HYDROCHLORIDE
     Dosage: 30 MG, QD
  6. CYMBALTA [Suspect]
     Active Substance: DULOXETINE HYDROCHLORIDE
     Indication: DEPRESSION
     Dosage: 60 MG, QD
     Route: 048
  7. CYMBALTA [Suspect]
     Active Substance: DULOXETINE HYDROCHLORIDE
     Dosage: 60 MG, QD
     Route: 048
  8. CYMBALTA [Suspect]
     Active Substance: DULOXETINE HYDROCHLORIDE
     Dosage: 90 MG, QD
     Route: 048

REACTIONS (25)
  - Disturbance in attention [Unknown]
  - Intentional self-injury [Unknown]
  - Affect lability [Unknown]
  - Suicidal ideation [Unknown]
  - Vertigo [Unknown]
  - Nightmare [Unknown]
  - Sensory disturbance [Unknown]
  - Irritability [Unknown]
  - Hyperhidrosis [Unknown]
  - Nausea [Unknown]
  - Headache [Unknown]
  - Sleep disorder [Unknown]
  - Agitation [Unknown]
  - Diarrhoea [Unknown]
  - Paraesthesia [Unknown]
  - Migraine [Unknown]
  - Insomnia [Unknown]
  - Dizziness [Unknown]
  - Vomiting [Unknown]
  - Influenza like illness [Unknown]
  - Memory impairment [Unknown]
  - Hallucination [Unknown]
  - Drug withdrawal syndrome [Unknown]
  - Aggression [Unknown]
  - Fatigue [Unknown]
